FAERS Safety Report 6635310-0 (Version None)
Quarter: 2010Q1

REPORT INFORMATION
  Report Type: 
  Country: None (occurrence: None)
  Receive Date: 20100315
  Receipt Date: 20100303
  Transmission Date: 20100710
  Serious: Yes (Hospitalization, Other)
  Sender: FDA-Public Use
  Company Number: FI-PFIZER INC-2010031048

PATIENT
  Age: 55 Year
  Sex: Female

DRUGS (3)
  1. VARENICLINE TARTRATE [Suspect]
     Dosage: 0.5 MG, 1X/DAY
  2. VARENICLINE TARTRATE [Suspect]
     Dosage: 0.5 MG, 2X/DAY
  3. TELMISARTAN [Concomitant]

REACTIONS (4)
  - CARDIAC DISORDER [None]
  - DIARRHOEA [None]
  - PHAEOCHROMOCYTOMA [None]
  - PULMONARY OEDEMA [None]
